FAERS Safety Report 9736447 (Version 2)
Quarter: 2014Q1

REPORT INFORMATION
  Report Type: Spontaneous
  Country: US (occurrence: US)
  Receive Date: 20131206
  Receipt Date: 20140224
  Transmission Date: 20141002
  Serious: Yes (Other)
  Sender: FDA-Public Use
  Company Number: US-TEVA-448636USA

PATIENT
  Age: 41 Year
  Sex: Female
  Weight: 85.35 kg

DRUGS (3)
  1. PARAGARD 380A [Suspect]
     Indication: CONTRACEPTION
     Route: 015
     Dates: start: 20131016, end: 20131127
  2. IRON [Concomitant]
     Indication: SUPPLEMENTATION THERAPY
     Route: 048
  3. PRENATAL VITAMINS [Concomitant]
     Indication: SUPPLEMENTATION THERAPY
     Dosage: 1 TABLET DAILY;
     Route: 048

REACTIONS (5)
  - Device dislocation [Recovered/Resolved]
  - Endometritis [Unknown]
  - Diarrhoea [Recovered/Resolved]
  - Pyrexia [Unknown]
  - Headache [Unknown]
